FAERS Safety Report 14676459 (Version 1)
Quarter: 2018Q1

REPORT INFORMATION
  Report Type: Spontaneous
  Country: US (occurrence: US)
  Receive Date: 20180323
  Receipt Date: 20180323
  Transmission Date: 20180509
  Serious: No
  Sender: FDA-Public Use
  Company Number: US-JNJFOC-20180237005

PATIENT
  Age: 24 Month

DRUGS (1)
  1. TYLENOL EXTRA STRENGTH [Suspect]
     Active Substance: ACETAMINOPHEN
     Indication: ACCIDENTAL EXPOSURE TO PRODUCT
     Route: 048
     Dates: start: 20180226, end: 20180226

REACTIONS (2)
  - Accidental exposure to product [Unknown]
  - Product container issue [Unknown]

NARRATIVE: CASE EVENT DATE: 20180226
